FAERS Safety Report 4847353-8 (Version None)
Quarter: 2005Q4

REPORT INFORMATION
  Report Type: 
  Country: None (occurrence: None)
  Receive Date: 20051207
  Receipt Date: 20051128
  Transmission Date: 20060501
  Serious: Yes (Disabling)
  Sender: FDA-Public Use
  Company Number: US-ROCHE-426808

PATIENT
  Age: 53 Year
  Sex: Male

DRUGS (2)
  1. PEGASYS [Suspect]
     Indication: HEPATITIS C
     Route: 058
     Dates: start: 20050729
  2. COPEGUS [Suspect]
     Indication: HEPATITIS C
     Route: 048
     Dates: start: 20050729, end: 20051115

REACTIONS (6)
  - CAPILLARY LEAK SYNDROME [None]
  - DEHYDRATION [None]
  - DIFFICULTY IN WALKING [None]
  - HAEMOGLOBIN DECREASED [None]
  - KETOSIS [None]
  - OEDEMA PERIPHERAL [None]
